FAERS Safety Report 13691518 (Version 1)
Quarter: 2017Q2

REPORT INFORMATION
  Report Type: Spontaneous
  Country: US (occurrence: US)
  Receive Date: 20170626
  Receipt Date: 20170626
  Transmission Date: 20170830
  Serious: No
  Sender: FDA-Public Use
  Company Number: US-ROCHE-GNE307398

PATIENT

DRUGS (1)
  1. TNKASE [Suspect]
     Active Substance: TENECTEPLASE
     Indication: ISCHAEMIC STROKE
     Route: 065

REACTIONS (1)
  - Medication error [Unknown]

NARRATIVE: CASE EVENT DATE: 2005
